FAERS Safety Report 23905297 (Version 2)
Quarter: 2024Q2

REPORT INFORMATION
  Report Type: Spontaneous
  Country: US (occurrence: US)
  Receive Date: 20240527
  Receipt Date: 20240626
  Transmission Date: 20240716
  Serious: No
  Sender: FDA-Public Use
  Company Number: US-SANOFI-02058909

PATIENT
  Age: 59 Year
  Sex: Male

DRUGS (1)
  1. LANTUS SOLOSTAR [Suspect]
     Active Substance: INSULIN GLARGINE
     Indication: Diabetes mellitus
     Dosage: 60 U, QD
     Route: 065

REACTIONS (3)
  - Injection site injury [Unknown]
  - Device occlusion [Unknown]
  - Emotional distress [Unknown]

NARRATIVE: CASE EVENT DATE: 20240521
